FAERS Safety Report 10907768 (Version 1)
Quarter: 2015Q1

REPORT INFORMATION
  Report Type: Spontaneous
  Country: TR (occurrence: None)
  Receive Date: 20150309
  Receipt Date: 20150309
  Transmission Date: 20150721
  Serious: Yes (Life-Threatening, Other)
  Sender: FDA-Public Use
  Company Number: 2015COR00045

PATIENT
  Age: 18 Year
  Sex: Male
  Weight: 86.5 kg

DRUGS (2)
  1. RISPERIDONE. [Concomitant]
     Active Substance: RISPERIDONE
  2. METHYLPHENIDATE (METHYLPHENIDATE) UNKNOWN [Suspect]
     Active Substance: METHYLPHENIDATE
     Indication: ATTENTION DEFICIT/HYPERACTIVITY DISORDER
     Dosage: 1X/DAY

REACTIONS (6)
  - Suicide attempt [None]
  - Intentional overdose [None]
  - Psychomotor hyperactivity [None]
  - Sinus tachycardia [None]
  - Hypertension [None]
  - Toxicity to various agents [None]
